FAERS Safety Report 9230094 (Version 7)
Quarter: 2013Q3

REPORT INFORMATION
  Report Type: Spontaneous
  Country: FR (occurrence: FR)
  Receive Date: 20130415
  Receipt Date: 20130723
  Transmission Date: 20140515
  Serious: Yes (Death)
  Sender: FDA-Public Use
  Company Number: FR-JNJFOC-20130406486

PATIENT
  Age: 82 Year
  Sex: Female

DRUGS (4)
  1. XARELTO [Suspect]
     Indication: THROMBOSIS PROPHYLAXIS
     Route: 048
  2. PYOSTACINE [Concomitant]
     Route: 065
  3. ROCEPHIN [Concomitant]
     Route: 065
  4. METFORMINE [Concomitant]
     Route: 065

REACTIONS (3)
  - Fatigue [Fatal]
  - Erysipelas [Fatal]
  - Streptococcal sepsis [Fatal]
